FAERS Safety Report 8608056-7 (Version None)
Quarter: 2012Q3

REPORT INFORMATION
  Report Type: 
  Country: None (occurrence: None)
  Receive Date: 20120821
  Receipt Date: 20120816
  Transmission Date: 20120928
  Serious: No
  Sender: FDA-Public Use
  Company Number: US-BAYER-2012-085756

PATIENT
  Sex: Female

DRUGS (1)
  1. CLIMARA [Suspect]
     Indication: HYPERHIDROSIS
     Dosage: UNK

REACTIONS (2)
  - HYPERHIDROSIS [None]
  - FEELING ABNORMAL [None]
